FAERS Safety Report 10101643 (Version 1)
Quarter: 2014Q2

REPORT INFORMATION
  Report Type: Spontaneous
  Country: US (occurrence: None)
  Receive Date: 20140422
  Receipt Date: 20140422
  Transmission Date: 20141212
  Serious: Yes (Other)
  Sender: FDA-Public Use
  Company Number: 2014SA023748

PATIENT
  Age: 69 Year
  Sex: Female

DRUGS (1)
  1. KYNAMRO [Suspect]
     Indication: TYPE IIA HYPERLIPIDAEMIA
     Dates: start: 20140220

REACTIONS (4)
  - Bronchitis [None]
  - Feeling cold [None]
  - Tremor [None]
  - Speech disorder [None]
